FAERS Safety Report 21399908 (Version 1)
Quarter: 2022Q4

REPORT INFORMATION
  Report Type: Spontaneous
  Country: US (occurrence: US)
  Receive Date: 20221002
  Receipt Date: 20221002
  Transmission Date: 20230112
  Serious: No
  Sender: FDA-Public Use
  Company Number: None

PATIENT
  Age: 61 Year
  Sex: Female
  Weight: 97.52 kg

DRUGS (1)
  1. VASCEPA [Suspect]
     Active Substance: ICOSAPENT ETHYL
     Indication: Blood triglycerides increased
     Dosage: FREQUENCY TEXT : TWICE DAILY
     Route: 048
     Dates: start: 2016

REACTIONS (6)
  - Product taste abnormal [Recovered/Resolved]
  - Therapeutic response unexpected [Unknown]
  - Product storage error [Recovered/Resolved]
  - Product dose omission issue [Unknown]
  - Product leakage [Not Recovered/Not Resolved]
  - Product physical issue [Not Recovered/Not Resolved]
